FAERS Safety Report 24375560 (Version 2)
Quarter: 2024Q4

REPORT INFORMATION
  Report Type: Spontaneous
  Country: US (occurrence: US)
  Receive Date: 20240928
  Receipt Date: 20241010
  Transmission Date: 20250114
  Serious: No
  Sender: Haleon PLC
  Company Number: US-HALEON-2199106

PATIENT
  Age: 77 Year
  Sex: Male

DRUGS (1)
  1. FLONASE ALLERGY RELIEF [Suspect]
     Active Substance: FLUTICASONE PROPIONATE
     Indication: Hypersensitivity

REACTIONS (3)
  - Throat irritation [Recovered/Resolved]
  - Product complaint [Unknown]
  - Wrong technique in product usage process [Unknown]
